FAERS Safety Report 8016822-4 (Version None)
Quarter: 2012Q1

REPORT INFORMATION
  Report Type: 
  Country: None (occurrence: None)
  Receive Date: 20120102
  Receipt Date: 20111216
  Transmission Date: 20120608
  Serious: Yes (Other)
  Sender: FDA-Public Use
  Company Number: US-NOVOPROD-338247

PATIENT

DRUGS (3)
  1. INSULIN GLARGINE [Suspect]
  2. NOVOLIN N [Suspect]
     Indication: TYPE 2 DIABETES MELLITUS
  3. NOVOLIN R [Suspect]

REACTIONS (1)
  - INJECTION SITE ABSCESS [None]
